FAERS Safety Report 16988370 (Version 4)
Quarter: 2020Q1

REPORT INFORMATION
  Report Type: Spontaneous
  Country: LB (occurrence: LB)
  Receive Date: 20191104
  Receipt Date: 20200329
  Transmission Date: 20200409
  Serious: Yes (Hospitalization, Other)
  Sender: FDA-Public Use
  Company Number: LB-BRISTOL-MYERS SQUIBB COMPANY-BMS-2019-103027

PATIENT
  Age: 74 Year
  Sex: Male

DRUGS (4)
  1. VENTOLINE [SALBUTAMOL] [Concomitant]
     Active Substance: ALBUTEROL SULFATE
     Indication: PRODUCT USED FOR UNKNOWN INDICATION
     Route: 065
  2. SOLPADEINE [CODEINE PHOSPHATE;PARACETAMOL] [Concomitant]
     Indication: ANTICOAGULANT THERAPY
     Route: 065
  3. OPDIVO [Suspect]
     Active Substance: NIVOLUMAB
     Indication: LUNG NEOPLASM MALIGNANT
     Dosage: 240 MILLIGRAM EVERY 15 DAYS
     Route: 042
  4. ANTI-INFLAMMATORY [Concomitant]
     Active Substance: UNSPECIFIED INGREDIENT
     Indication: PRODUCT USED FOR UNKNOWN INDICATION
     Route: 065

REACTIONS (7)
  - Pulmonary oedema [Unknown]
  - Pneumonia [Not Recovered/Not Resolved]
  - Hip fracture [Recovering/Resolving]
  - Inflammation [Unknown]
  - Fall [Recovering/Resolving]
  - Femur fracture [Recovering/Resolving]
  - Off label use [Unknown]

NARRATIVE: CASE EVENT DATE: 20191005
